FAERS Safety Report 9859185 (Version 2)
Quarter: 2014Q1

REPORT INFORMATION
  Report Type: Spontaneous
  Country: FR (occurrence: FR)
  Receive Date: 20140131
  Receipt Date: 20140331
  Transmission Date: 20141002
  Serious: Yes (Hospitalization, Other)
  Sender: FDA-Public Use
  Company Number: PHHY2014FR010640

PATIENT
  Age: 74 Year
  Sex: Female

DRUGS (5)
  1. STALEVO [Suspect]
     Indication: PARKINSON^S DISEASE
     Dosage: 1 DF, TID
     Route: 048
     Dates: start: 201309, end: 20131128
  2. PERINDOPRIL [Concomitant]
     Dosage: UNK UKN, UNK
  3. ACEBUTOLOL [Concomitant]
     Dosage: UNK UKN, UNK
  4. KARDEGIC [Concomitant]
     Dosage: UNK UKN, UNK
  5. SECTRAL [Concomitant]
     Dosage: UNK UKN, UNK

REACTIONS (2)
  - General physical health deterioration [Recovered/Resolved]
  - Diarrhoea [Recovered/Resolved]
